FAERS Safety Report 8231960-9 (Version None)
Quarter: 2012Q1

REPORT INFORMATION
  Report Type: 
  Country: None (occurrence: None)
  Receive Date: 20120323
  Receipt Date: 20120319
  Transmission Date: 20120608
  Serious: Yes (Hospitalization)
  Sender: FDA-Public Use
  Company Number: US-JNJFOC-20120213249

PATIENT
  Sex: Male
  Weight: 49.9 kg

DRUGS (5)
  1. NUCYNTA [Suspect]
     Indication: CROHN'S DISEASE
     Dosage: 4 TIMES A DAY
     Route: 048
     Dates: start: 20110601
  2. ZOLOFT [Concomitant]
     Indication: DEPRESSION
     Route: 048
     Dates: start: 19980101
  3. DOXYLAMINE SUCCINATE [Concomitant]
     Indication: SLEEP DISORDER
     Route: 048
  4. TOPAMAX [Concomitant]
     Indication: HEADACHE
     Route: 048
  5. AMBISOME [Suspect]
     Indication: PRODUCT USED FOR UNKNOWN INDICATION
     Route: 065

REACTIONS (7)
  - WRONG TECHNIQUE IN DRUG USAGE PROCESS [None]
  - BACK PAIN [None]
  - FUNGAL SEPSIS [None]
  - BREAKTHROUGH PAIN [None]
  - CHEST DISCOMFORT [None]
  - IMMUNE SYSTEM DISORDER [None]
  - TREMOR [None]
